FAERS Safety Report 5563596-2 (Version None)
Quarter: 2007Q4

REPORT INFORMATION
  Report Type: 
  Country: None (occurrence: None)
  Receive Date: 20071217
  Receipt Date: 20070716
  Transmission Date: 20080405
  Serious: No
  Sender: FDA-Public Use
  Company Number: US-ASTRAZENECA-2007UW16508

PATIENT
  Age: 72 Year
  Sex: Female
  Weight: 77.1 kg

DRUGS (4)
  1. CRESTOR [Suspect]
     Indication: BLOOD CHOLESTEROL INCREASED
     Route: 048
     Dates: start: 20070714
  2. ATACAND HCT [Concomitant]
  3. DETROL LA [Concomitant]
  4. COBIX [Concomitant]

REACTIONS (3)
  - EPISTAXIS [None]
  - MUSCULAR WEAKNESS [None]
  - TREMOR [None]
